FAERS Safety Report 11864550 (Version 1)
Quarter: 2015Q4

REPORT INFORMATION
  Report Type: Spontaneous
  Country: US (occurrence: US)
  Receive Date: 20151223
  Receipt Date: 20151223
  Transmission Date: 20160305
  Serious: No
  Sender: FDA-Public Use
  Company Number: US-RISING PHARMACEUTICALS, INC.-2014PAC00073

PATIENT
  Age: 5 Year
  Sex: Male

DRUGS (1)
  1. CROMOLYN SODIUM ORAL SOLUTION [Suspect]
     Active Substance: CROMOLYN SODIUM
     Dosage: 1 TSP, 3X/DAY

REACTIONS (3)
  - Polydipsia [Not Recovered/Not Resolved]
  - Pollakiuria [Not Recovered/Not Resolved]
  - Rash [Recovered/Resolved]
